FAERS Safety Report 4878756-3 (Version None)
Quarter: 2005Q4

REPORT INFORMATION
  Report Type: 
  Country: None (occurrence: None)
  Receive Date: 20051209
  Receipt Date: 20050518
  Transmission Date: 20060501
  Serious: Yes (Other)
  Sender: FDA-Public Use
  Company Number: USA-2005-0020298

PATIENT
  Age: 15 Year
  Sex: Male

DRUGS (4)
  1. OXYCONTIN [Suspect]
     Dosage: 80 MG, TID
  2. MARIJUANA (CANNABIS) [Suspect]
  3. COCAINE (COCAINE) [Suspect]
  4. HEROIN (DIAMORPHINE) [Suspect]

REACTIONS (8)
  - ASTHENIA [None]
  - DRUG DEPENDENCE [None]
  - DRUG WITHDRAWAL SYNDROME [None]
  - FEELING ABNORMAL [None]
  - HYPERHIDROSIS [None]
  - POLYSUBSTANCE ABUSE [None]
  - TREMOR [None]
  - VOMITING [None]
